FAERS Safety Report 7054632-5 (Version None)
Quarter: 2010Q4

REPORT INFORMATION
  Report Type: 
  Country: None (occurrence: None)
  Receive Date: 20101015
  Receipt Date: 20101011
  Transmission Date: 20110411
  Serious: Yes (Death)
  Sender: FDA-Public Use
  Company Number: 2010US003434

PATIENT
  Age: 59 Year
  Sex: Male

DRUGS (10)
  1. PROGRAF [Suspect]
     Indication: BONE MARROW TRANSPLANT
     Dosage: UNK, IV NOS
     Route: 042
     Dates: end: 20100404
  2. PROGRAF [Suspect]
     Indication: BONE MARROW TRANSPLANT
     Dosage: UNK, IV NOS
     Route: 042
     Dates: start: 20090128
  3. ACYCLOVIR [Concomitant]
  4. ASPIRIN [Concomitant]
  5. CALCIUM (CALCIUM) [Concomitant]
  6. FLUCONAZOLE [Concomitant]
  7. LANTUS [Concomitant]
  8. MEDROL [Concomitant]
  9. PEPCID [Concomitant]
  10. VITAMIN D [Concomitant]

REACTIONS (5)
  - HYPERKALAEMIA [None]
  - NEOPLASM MALIGNANT [None]
  - PNEUMONIA [None]
  - RENAL FAILURE ACUTE [None]
  - SEPTIC SHOCK [None]
